FAERS Safety Report 19368365 (Version 1)
Quarter: 2021Q2

REPORT INFORMATION
  Report Type: Spontaneous
  Country: US (occurrence: US)
  Receive Date: 20210602
  Receipt Date: 20210602
  Transmission Date: 20210717
  Serious: No
  Sender: FDA-Public Use
  Company Number: US-ROCHE-2644272

PATIENT
  Age: 32 Year
  Sex: Female
  Weight: 68.1 kg

DRUGS (2)
  1. OCREVUS [Suspect]
     Active Substance: OCRELIZUMAB
     Dosage: 600 MG IV INFUSION EVERY 6 MONTHS ;ONGOING: UNKNOWN
     Route: 041
     Dates: start: 20191023
  2. OCREVUS [Suspect]
     Active Substance: OCRELIZUMAB
     Indication: MULTIPLE SCLEROSIS
     Dosage: TWO 300 MG IV INFUSIONS SEPARATED BY 2 WEEKS ;ONGOING: NO
     Route: 041
     Dates: start: 20190501, end: 20190515

REACTIONS (2)
  - Inappropriate schedule of product administration [Unknown]
  - No adverse event [Unknown]
